FAERS Safety Report 8157175-0 (Version None)
Quarter: 2012Q1

REPORT INFORMATION
  Report Type: 
  Country: None (occurrence: None)
  Receive Date: 20120222
  Receipt Date: 20120215
  Transmission Date: 20120608
  Serious: Yes (Other)
  Sender: FDA-Public Use
  Company Number: GXKR2010GB11056

PATIENT
  Age: 68 Year
  Sex: Male

DRUGS (4)
  1. FLUOROURACIL [Suspect]
     Indication: RECTOSIGMOID CANCER
     Dosage: 2400 MG/M2, BIW
     Route: 042
  2. LEUCOVORIN CALCIUM [Concomitant]
     Indication: RECTOSIGMOID CANCER
     Dosage: 350 MG, BIW
     Route: 065
  3. FLUOROURACIL [Suspect]
     Dosage: 400 MG/M2, BIW
     Route: 040
  4. OXALIPLATIN [Suspect]
     Indication: RECTOSIGMOID CANCER
     Dosage: 85 MG/M2, BIW
     Route: 042

REACTIONS (12)
  - PYREXIA [None]
  - FEELING COLD [None]
  - CHILLS [None]
  - VOMITING [None]
  - RECTAL HAEMORRHAGE [None]
  - INFECTION [None]
  - HYPERSENSITIVITY [None]
  - NAUSEA [None]
  - THROMBOCYTOPENIA [None]
  - NEUTROPENIC SEPSIS [None]
  - HAEMATEMESIS [None]
  - NEUROPATHY PERIPHERAL [None]
